FAERS Safety Report 18595897 (Version 1)
Quarter: 2020Q4

REPORT INFORMATION
  Report Type: Spontaneous
  Country: US (occurrence: US)
  Receive Date: 20201209
  Receipt Date: 20201209
  Transmission Date: 20210114
  Serious: Yes (Death)
  Sender: FDA-Public Use
  Company Number: None

PATIENT
  Sex: Male

DRUGS (9)
  1. METHOCARBAM [Suspect]
     Active Substance: METHOCARBAMOL
  2. METHYLPRED [Suspect]
     Active Substance: METHYLPREDNISOLONE
  3. VYNDAMAX [Suspect]
     Active Substance: TAFAMIDIS
     Indication: PRODUCT USED FOR UNKNOWN INDICATION
     Route: 048
  4. GABAPENTIN. [Suspect]
     Active Substance: GABAPENTIN
  5. AMLODIPINE [Suspect]
     Active Substance: AMLODIPINE BESYLATE
  6. DEXAMETHASON [Suspect]
     Active Substance: DEXAMETHASONE
  7. FUROSEMIDE. [Suspect]
     Active Substance: FUROSEMIDE
  8. APAP/CODEINE [Suspect]
     Active Substance: ACETAMINOPHEN\CODEINE PHOSPHATE
  9. METOPROL SUC ER [Suspect]
     Active Substance: METOPROLOL SUCCINATE

REACTIONS (1)
  - Death [None]
